FAERS Safety Report 4800627-9 (Version None)
Quarter: 2005Q4

REPORT INFORMATION
  Report Type: 
  Country: None (occurrence: None)
  Receive Date: 20051013
  Receipt Date: 20051013
  Transmission Date: 20060501
  Serious: Yes (Hospitalization)
  Sender: FDA-Public Use
  Company Number: None

PATIENT
  Sex: Female
  Weight: 79.7 kg

DRUGS (1)
  1. LOVENOX [Suspect]
     Indication: SICKLE CELL ANAEMIA
     Dosage: 40 MG QDAY SQ
     Route: 058

REACTIONS (3)
  - MENTAL STATUS CHANGES [None]
  - SICKLE CELL ANAEMIA WITH CRISIS [None]
  - SUBDURAL HAEMATOMA [None]
